FAERS Safety Report 21331162 (Version 1)
Quarter: 2022Q3

REPORT INFORMATION
  Report Type: Spontaneous
  Country: US (occurrence: US)
  Receive Date: 20220914
  Receipt Date: 20220914
  Transmission Date: 20221026
  Serious: Yes (Death, Hospitalization, Other)
  Sender: FDA-Public Use
  Company Number: US-HETERO-HET2022US02223

PATIENT
  Sex: Male
  Weight: 72.5 kg

DRUGS (1)
  1. COLCHICINE [Suspect]
     Active Substance: COLCHICINE
     Indication: Gout
     Dosage: ESTIMATED DOSE 18MG OR 0.248 MG/KG (BOTTLE OF 30 TABLETS)
     Route: 065

REACTIONS (10)
  - Acidosis [Fatal]
  - Intentional overdose [Fatal]
  - Multiple organ dysfunction syndrome [Fatal]
  - Leukocytosis [Fatal]
  - Hypotension [Fatal]
  - Confusional state [Fatal]
  - Hepatic function abnormal [Fatal]
  - Acute kidney injury [Fatal]
  - Thrombocytopenia [Fatal]
  - Coagulopathy [Fatal]
